FAERS Safety Report 14361173 (Version 1)
Quarter: 2018Q1

REPORT INFORMATION
  Report Type: Spontaneous
  Country: US (occurrence: US)
  Receive Date: 20180107
  Receipt Date: 20180107
  Transmission Date: 20180509
  Serious: No
  Sender: FDA-Public Use
  Company Number: US-009507513-1712USA005662

PATIENT
  Sex: Female
  Weight: 63.49 kg

DRUGS (1)
  1. NEXPLANON [Suspect]
     Active Substance: ETONOGESTREL
     Indication: CONTRACEPTION
     Dosage: EVERY 3 YEARS; LEFT ARM - IMPLANT
     Route: 059
     Dates: start: 20150806

REACTIONS (2)
  - Migraine [Not Recovered/Not Resolved]
  - Oligomenorrhoea [Not Recovered/Not Resolved]
